FAERS Safety Report 5242274-3 (Version None)
Quarter: 2007Q1

REPORT INFORMATION
  Report Type: 
  Country: None (occurrence: None)
  Receive Date: 20070221
  Receipt Date: 20070209
  Transmission Date: 20070707
  Serious: Yes (Hospitalization, Other)
  Sender: FDA-Public Use
  Company Number: DE-JNJFOC-20070201061

PATIENT
  Age: 7 Decade
  Sex: Female
  Weight: 66 kg

DRUGS (7)
  1. INFLIXIMAB [Suspect]
     Indication: INFLAMMATION
     Route: 042
  2. MTX [Concomitant]
     Route: 048
  3. FOLIC ACID [Concomitant]
     Route: 048
  4. DICLO [Concomitant]
     Route: 048
  5. TORSEMIDE [Concomitant]
     Route: 048
  6. BELOC-ZOC [Concomitant]
     Route: 048
  7. CALCIGEN D [Concomitant]
     Route: 048

REACTIONS (7)
  - ARTHRALGIA [None]
  - DIVERTICULITIS [None]
  - GASTRITIS EROSIVE [None]
  - HYPERTENSION [None]
  - LAPAROSCOPIC SURGERY [None]
  - OBESITY [None]
  - OSTEOPENIA [None]
